FAERS Safety Report 5532298-0 (Version None)
Quarter: 2007Q4

REPORT INFORMATION
  Report Type: 
  Country: None (occurrence: None)
  Receive Date: 20071203
  Receipt Date: 20071127
  Transmission Date: 20080405
  Serious: Yes (Other)
  Sender: FDA-Public Use
  Company Number: US-GENENTECH-247772

PATIENT

DRUGS (3)
  1. AVASTIN [Suspect]
     Indication: MACULAR DEGENERATION
     Dosage: 1.25 MG, Q2M
     Route: 031
     Dates: start: 20070905
  2. LIDOCAIN [Concomitant]
     Indication: PREMEDICATION
  3. VIGAMOX [Concomitant]
     Indication: DRUG USE FOR UNKNOWN INDICATION

REACTIONS (2)
  - PHARMACEUTICAL PRODUCT COMPLAINT [None]
  - UVEITIS [None]
